FAERS Safety Report 10821792 (Version 1)
Quarter: 2015Q1

REPORT INFORMATION
  Report Type: Spontaneous
  Country: US (occurrence: US)
  Receive Date: 20150218
  Receipt Date: 20150218
  Transmission Date: 20150721
  Serious: Yes (Hospitalization)
  Sender: FDA-Public Use
  Company Number: US-ABBVIE-14K-163-1301580-00

PATIENT
  Age: 46 Year
  Weight: 50.85 kg

DRUGS (5)
  1. METHOTREXATE [Concomitant]
     Active Substance: METHOTREXATE
     Indication: CROHN^S DISEASE
     Dates: end: 20140911
  2. HUMIRA [Suspect]
     Active Substance: ADALIMUMAB
     Indication: CROHN^S DISEASE
     Route: 065
     Dates: start: 2009, end: 20140911
  3. VITAMINS NOS [Concomitant]
     Active Substance: VITAMINS
     Indication: VITAMIN SUPPLEMENTATION
  4. AZATHIOPRINE. [Concomitant]
     Active Substance: AZATHIOPRINE
     Indication: PRODUCT USED FOR UNKNOWN INDICATION
  5. CALCIUM [Concomitant]
     Active Substance: CALCIUM
     Indication: MINERAL SUPPLEMENTATION

REACTIONS (6)
  - Pyrexia [Recovered/Resolved]
  - Histoplasmosis [Recovering/Resolving]
  - Liver function test abnormal [Recovered/Resolved]
  - Unevaluable event [Unknown]
  - Pleural effusion [Recovered/Resolved]
  - Bacterial infection [Unknown]

NARRATIVE: CASE EVENT DATE: 201409
